FAERS Safety Report 9292149 (Version 2)
Quarter: 2013Q2

REPORT INFORMATION
  Report Type: Spontaneous
  Country: US (occurrence: US)
  Receive Date: 20130516
  Receipt Date: 20130520
  Transmission Date: 20140414
  Serious: Yes (Other)
  Sender: FDA-Public Use
  Company Number: US-JNJFOC-20130505500

PATIENT
  Sex: Female

DRUGS (4)
  1. TRAMADOL HYDROCHLORIDE [Suspect]
     Indication: PROCEDURAL PAIN
     Route: 065
  2. CELEBREX [Concomitant]
     Route: 065
     Dates: end: 20130504
  3. OXYCONTIN [Concomitant]
     Route: 065
     Dates: end: 20130504
  4. OXYCODONE [Concomitant]
     Route: 065
     Dates: end: 20130504

REACTIONS (3)
  - Leukocytoclastic vasculitis [Unknown]
  - Wrist fracture [Unknown]
  - Fall [Unknown]
